FAERS Safety Report 11675623 (Version 1)
Quarter: 2015Q4

REPORT INFORMATION
  Report Type: Spontaneous
  Country: US (occurrence: US)
  Receive Date: 20151027
  Receipt Date: 20151027
  Transmission Date: 20160304
  Serious: No
  Sender: FDA-Public Use
  Company Number: US-ELI_LILLY_AND_COMPANY-US201009001838

PATIENT
  Age: 55 Year
  Sex: Female

DRUGS (2)
  1. FLECTOR /00372302/ [Concomitant]
     Active Substance: DICLOFENAC SODIUM
     Dosage: UNK, 2/D
     Dates: start: 20100729
  2. FORTEO [Suspect]
     Active Substance: TERIPARATIDE
     Indication: OSTEOPOROSIS
     Dosage: 20 UG, UNK
     Dates: start: 20100826

REACTIONS (1)
  - Dysgeusia [Unknown]

NARRATIVE: CASE EVENT DATE: 20100901
